FAERS Safety Report 23757656 (Version 1)
Quarter: 2024Q2

REPORT INFORMATION
  Report Type: Report from Study
  Country: RU (occurrence: RU)
  Receive Date: 20240418
  Receipt Date: 20240418
  Transmission Date: 20240716
  Serious: Yes (Other)
  Sender: FDA-Public Use
  Company Number: RU-002147023-NVSC2024RU081607

PATIENT
  Sex: Female

DRUGS (1)
  1. RIBOCICLIB [Suspect]
     Active Substance: RIBOCICLIB
     Indication: Breast cancer
     Dosage: 600 MG, QD, PER DAY ON DAYS 1-21
     Route: 048
     Dates: start: 20230404

REACTIONS (2)
  - Azotaemia [Recovering/Resolving]
  - Leukopenia [Recovering/Resolving]
